FAERS Safety Report 21425483 (Version 5)
Quarter: 2023Q1

REPORT INFORMATION
  Report Type: Spontaneous
  Country: CA (occurrence: CA)
  Receive Date: 20221008
  Receipt Date: 20230321
  Transmission Date: 20230418
  Serious: Yes (Other)
  Sender: FDA-Public Use
  Company Number: CA-CELLTRION INC.-2022CA008639

PATIENT

DRUGS (18)
  1. INFLECTRA [Suspect]
     Active Substance: INFLIXIMAB-DYYB
     Indication: Crohn^s disease
     Dosage: 1 DF, 900 MG THE FIRST DOSE THEN 500 MG AT WEEK 1 AND 4 THEN EVERY 8 WEEKS
     Route: 042
     Dates: start: 20220512
  2. INFLECTRA [Suspect]
     Active Substance: INFLIXIMAB-DYYB
     Dosage: 1 DF, 900 MG THE FIRST DOSE THEN 500 MG AT WEEK 1 AND 4 THEN EVERY 8 WEEKS
     Route: 042
     Dates: start: 20220512
  3. INFLECTRA [Suspect]
     Active Substance: INFLIXIMAB-DYYB
     Dosage: 1 DF, 900 MG THE FIRST DOSE THEN 500 MG AT WEEK 1 AND 4 THEN EVERY 8 WEEKS
     Route: 042
     Dates: start: 20220519
  4. INFLECTRA [Suspect]
     Active Substance: INFLIXIMAB-DYYB
     Dosage: 1 DF, 900 MG THE FIRST DOSE THEN 500 MG AT WEEK 1 AND 4 THEN EVERY 8 WEEKS
     Route: 042
     Dates: start: 20220802
  5. INFLECTRA [Suspect]
     Active Substance: INFLIXIMAB-DYYB
     Dosage: 1 DF, 900 MG THE FIRST DOSE THEN 500 MG AT WEEK 1 AND 4 THEN EVERY 8 WEEKS
     Route: 042
     Dates: start: 20220927
  6. INFLECTRA [Suspect]
     Active Substance: INFLIXIMAB-DYYB
     Dosage: 1 DF, 900 MG THE FIRST DOSE THEN 500 MG AT WEEK 1 AND 4 THEN EVERY 8 WEEKS
     Route: 042
     Dates: start: 20221122
  7. INFLECTRA [Suspect]
     Active Substance: INFLIXIMAB-DYYB
     Dosage: 900 MG THE FIRST DOSE THEN 500 MG AT WEEK 1 AND 4 THEN EVERY 8 WEEKS
     Route: 042
     Dates: start: 20230117
  8. INFLECTRA [Suspect]
     Active Substance: INFLIXIMAB-DYYB
     Dosage: 500 MG, Q8 WEEKS
     Route: 042
     Dates: start: 20230314
  9. AMLODIPINE [Concomitant]
     Active Substance: AMLODIPINE BESYLATE
     Dosage: 1 MG
     Route: 065
  10. FOLIC ACID [Concomitant]
     Active Substance: FOLIC ACID
     Dosage: 5 MG
     Route: 065
  11. IRBESARTAN [Concomitant]
     Active Substance: IRBESARTAN
     Dosage: 150 MG
     Route: 065
  12. MCAL [Concomitant]
     Dosage: 500 MG
     Route: 065
  13. METHOTREXATE [Concomitant]
     Active Substance: METHOTREXATE
     Dosage: 15 MG
     Route: 048
  14. PREDNISONE [Concomitant]
     Active Substance: PREDNISONE
     Dosage: 1 DF, DOSAGE UNKNOWN
     Route: 065
  15. QUETIAPINE [Concomitant]
     Active Substance: QUETIAPINE
     Dosage: 25 MG
     Route: 065
  16. RISEDRONATE SODIUM [Concomitant]
     Active Substance: RISEDRONATE SODIUM
     Dosage: 35 MG
     Route: 065
  17. ROSUVASTATIN [Concomitant]
     Active Substance: ROSUVASTATIN
     Dosage: 5 MG
     Route: 065
  18. SULFATRIM [Concomitant]
     Active Substance: SULFAMETHOXAZOLE\TRIMETHOPRIM
     Dosage: 800 MG
     Route: 065

REACTIONS (12)
  - Haematochezia [Recovered/Resolved]
  - Haematochezia [Not Recovered/Not Resolved]
  - Lacrimation increased [Recovered/Resolved]
  - Rhinorrhoea [Recovered/Resolved]
  - Infusion related reaction [Recovered/Resolved]
  - Discomfort [Recovered/Resolved]
  - Night sweats [Not Recovered/Not Resolved]
  - Anal fissure [Not Recovered/Not Resolved]
  - Off label use [Unknown]
  - Off label use [Unknown]
  - Off label use [Unknown]
  - Intentional product use issue [Unknown]

NARRATIVE: CASE EVENT DATE: 20220512
